FAERS Safety Report 12889502 (Version 8)
Quarter: 2017Q1

REPORT INFORMATION
  Report Type: Report from Study
  Country: US (occurrence: US)
  Receive Date: 20161027
  Receipt Date: 20170208
  Transmission Date: 20170428
  Serious: Yes (Life-Threatening, Hospitalization)
  Sender: FDA-Public Use
  Company Number: US-PFIZER INC-2016494887

PATIENT
  Age: 45 Year
  Sex: Female
  Weight: 44 kg

DRUGS (13)
  1. OLANZAPINE. [Suspect]
     Active Substance: OLANZAPINE
     Dosage: 10 MG, 1X/DAY (BEDTIME)
     Route: 048
     Dates: start: 20151222, end: 20151225
  2. OLANZAPINE. [Suspect]
     Active Substance: OLANZAPINE
     Dosage: 15 MG, 1X/DAY (BEDTIME)
     Route: 048
     Dates: start: 20151226, end: 20160314
  3. BLINDED THERAPY [Suspect]
     Active Substance: INVESTIGATIONAL PRODUCT
     Indication: MAJOR DEPRESSION
     Dosage: BLINDED THERAPY, 1X/DAY (BEDTIME)
     Route: 048
     Dates: start: 20160315, end: 20160329
  4. SERTRALINE HCL [Suspect]
     Active Substance: SERTRALINE HYDROCHLORIDE
     Indication: MAJOR DEPRESSION
     Dosage: 50 MG, 1X/DAY (MORNING)
     Route: 048
     Dates: start: 20151220, end: 20151222
  5. BLINDED THERAPY [Suspect]
     Active Substance: INVESTIGATIONAL PRODUCT
     Dosage: BLINDED THERAPY, 1X/DAY (BEDTIME)
     Route: 048
     Dates: start: 20160413, end: 20161018
  6. OLANZAPINE. [Suspect]
     Active Substance: OLANZAPINE
     Dosage: 10 MG, 1X/DAY (BEDTIME)
     Route: 048
     Dates: start: 20160315, end: 20160329
  7. OLANZAPINE. [Suspect]
     Active Substance: OLANZAPINE
     Dosage: 5 MG, 1X/DAY (BEDTIME)
     Route: 048
     Dates: start: 20160330, end: 20160412
  8. NYQUIL COLD AND FLU [Concomitant]
     Active Substance: ACETAMINOPHEN\DEXTROMETHORPHAN HYDROBROMIDE\DOXYLAMINE SUCCINATE
     Indication: INFLUENZA
     Dosage: UNK, AS NEEDED
     Route: 048
     Dates: start: 2009
  9. SERTRALINE HCL [Suspect]
     Active Substance: SERTRALINE HYDROCHLORIDE
     Dosage: 100 MG, 1X/DAY (MORNING)
     Route: 048
     Dates: start: 20151223, end: 20151226
  10. SERTRALINE HCL [Suspect]
     Active Substance: SERTRALINE HYDROCHLORIDE
     Dosage: 150 MG, 1X/DAY (MORNING)
     Route: 048
     Dates: start: 20151227
  11. BLINDED THERAPY [Suspect]
     Active Substance: INVESTIGATIONAL PRODUCT
     Dosage: BLINDED THERAPY, 1X/DAY (BEDTIME)
     Route: 048
     Dates: start: 20160330, end: 20160412
  12. OLANZAPINE. [Suspect]
     Active Substance: OLANZAPINE
     Indication: MAJOR DEPRESSION
     Dosage: 5 MG, 1X/DAY (BEDTIME)
     Route: 048
     Dates: start: 20151217, end: 20151221
  13. FERROUS SULFATE. [Concomitant]
     Active Substance: FERROUS SULFATE
     Indication: IRON DEFICIENCY ANAEMIA
     Dosage: UNK
     Route: 048
     Dates: start: 20151215

REACTIONS (3)
  - Major depression [Recovering/Resolving]
  - Condition aggravated [Recovering/Resolving]
  - Suicide attempt [Recovering/Resolving]

NARRATIVE: CASE EVENT DATE: 20161015
